FAERS Safety Report 10609908 (Version 2)
Quarter: 2014Q4

REPORT INFORMATION
  Report Type: Spontaneous
  Country: BR (occurrence: BR)
  Receive Date: 20141126
  Receipt Date: 20141126
  Transmission Date: 20150529
  Serious: Yes (Other)
  Sender: FDA-Public Use
  Company Number: CHPA2014BR012080

PATIENT
  Sex: Female
  Weight: 72 kg

DRUGS (3)
  1. CATAFLAM [Suspect]
     Active Substance: DICLOFENAC POTASSIUM
     Indication: MYALGIA
     Dosage: UNK
     Route: 065
     Dates: start: 2013
  2. CATAFLAM [Suspect]
     Active Substance: DICLOFENAC POTASSIUM
     Indication: MYALGIA
     Dosage: 150 MG, UNK
     Route: 061
     Dates: start: 2013
  3. HALOBEX [Concomitant]
     Indication: PSORIASIS
     Dosage: UNK
     Route: 065
     Dates: start: 2013

REACTIONS (4)
  - Cyst [Unknown]
  - Pain [Unknown]
  - Condition aggravated [Unknown]
  - Sleep disorder [Unknown]
